FAERS Safety Report 6409577-8 (Version None)
Quarter: 2009Q4

REPORT INFORMATION
  Report Type: 
  Country: None (occurrence: None)
  Receive Date: 20091022
  Receipt Date: 20091012
  Transmission Date: 20100525
  Serious: Yes (Death, Other)
  Sender: FDA-Public Use
  Company Number: US-BAYER-US-2007-006372

PATIENT
  Age: 65 Year
  Sex: Male
  Weight: 95 kg

DRUGS (36)
  1. MAGNEVIST [Suspect]
     Indication: ANGIOGRAM
     Dosage: UNK, 1 DOSE
     Route: 042
     Dates: start: 20050204, end: 20050204
  2. OMNISCAN [Suspect]
  3. OPTIMARK [Suspect]
  4. PROHANCE [Suspect]
  5. MULTIHANCE [Suspect]
  6. UNSPECIFIED GADOLINIUM [Suspect]
     Indication: NUCLEAR MAGNETIC RESONANCE IMAGING
     Route: 042
     Dates: start: 19990701, end: 19990701
  7. DOBUTAMINE HCL [Concomitant]
     Indication: CARDIAC STRESS TEST
     Dosage: UNK, 1 DOSE
     Dates: start: 20050101, end: 20050101
  8. DEFINITY [Concomitant]
     Indication: ECHOCARDIOGRAM
     Dosage: UNIT DOSE: 2 ML
     Dates: start: 20060309, end: 20060309
  9. ULTRAVIST 300 [Concomitant]
     Indication: FISTULOGRAM
     Dosage: UNK, 1 DOSE
     Dates: start: 20070328, end: 20070328
  10. ISOVUE-128 [Concomitant]
     Indication: FISTULOGRAM
     Dosage: UNIT DOSE: 30 ML
     Dates: start: 20070330, end: 20070330
  11. ISOVUE-128 [Concomitant]
     Dosage: UNK, 1 DOSE
     Dates: start: 20070328, end: 20070328
  12. LIPITOR [Concomitant]
     Dosage: UNIT DOSE: 20 MG
  13. COLACE [Concomitant]
     Dosage: UNIT DOSE: 100 MG
  14. FOLIC ACID [Concomitant]
     Dosage: UNIT DOSE: 1 MG
  15. NEPHROCAPS [Concomitant]
     Dosage: 1 CAP(S), 1X/DAY [DAILY DOSE: 1 CAP(S)]
  16. NPH INSULIN [Concomitant]
     Dosage: SLIDING SCALE
  17. REGULAR INSULIN [Concomitant]
     Dosage: SLIDING SCALE
  18. NADOLOL [Concomitant]
     Dosage: UNIT DOSE: 10 MG
  19. PROTONIX [Concomitant]
     Dosage: UNIT DOSE: 40 MG
     Route: 048
  20. COUMADIN [Concomitant]
     Dosage: UNIT DOSE: 2.5 MG
     Dates: start: 20070404
  21. LISINOPRIL [Concomitant]
     Dosage: UNIT DOSE: 10 MG
  22. METOPROLOL [Concomitant]
     Dosage: UNIT DOSE: 25 MG
  23. NORVASC [Concomitant]
     Dosage: UNIT DOSE: 5 MG
  24. MAGNESIUM OXIDE [Concomitant]
     Dosage: UNIT DOSE: 400 MG
  25. INSULIN ASPARTATE [Concomitant]
  26. PHOSLO [Concomitant]
     Dosage: UNIT DOSE: 667 MG
  27. SENNA [Concomitant]
  28. DARVOCET-N 100 [Concomitant]
     Indication: PAIN
     Dosage: 1 TAB(S), AS REQ'D [DAILY DOSE: 1 TAB(S)]
     Route: 048
  29. EPOGEN [Concomitant]
     Dosage: 30000UNITS X 6 WEEKS
     Route: 058
  30. EPOGEN [Concomitant]
     Dosage: 20000 UNITS
     Route: 058
  31. IRON [Concomitant]
  32. ERGOCALCIFEROL [Concomitant]
     Indication: HYPOPARATHYROIDISM
     Dosage: 50000 UNITS
     Route: 048
     Dates: start: 20070331, end: 20070402
  33. AMBIEN [Concomitant]
     Dosage: UNK, UNK
     Dates: start: 20070328
  34. MAALOX /USA/ [Concomitant]
     Dosage: UNK, UNK
     Dates: start: 20070327
  35. ARANESP [Concomitant]
     Dosage: 100 ?G, UNK
  36. FERRLECIT /USA/ [Concomitant]
     Dosage: UNK, UNK
     Dates: start: 20051203

REACTIONS (9)
  - HYPOAESTHESIA [None]
  - MUSCULOSKELETAL STIFFNESS [None]
  - NEPHROGENIC SYSTEMIC FIBROSIS [None]
  - OEDEMA PERIPHERAL [None]
  - PAIN [None]
  - PEAU D'ORANGE [None]
  - SKIN HYPERPIGMENTATION [None]
  - SKIN HYPERTROPHY [None]
  - SKIN TIGHTNESS [None]
